FAERS Safety Report 5126546-9 (Version None)
Quarter: 2006Q4

REPORT INFORMATION
  Report Type: 
  Country: None (occurrence: None)
  Receive Date: 20061012
  Receipt Date: 20061012
  Transmission Date: 20070319
  Serious: Yes (Disabling, Other)
  Sender: FDA-Public Use
  Company Number: None

PATIENT
  Age: 54 Year
  Sex: Male
  Weight: 70.3075 kg

DRUGS (1)
  1. SIMVASTATIN  20MG  DR. REDDY'S LA [Suspect]
     Indication: BLOOD CHOLESTEROL INCREASED
     Dosage: 1 TABLET DAILY PO
     Route: 048
     Dates: start: 20060531, end: 20060929

REACTIONS (5)
  - BURNING SENSATION [None]
  - EXFOLIATIVE RASH [None]
  - HOT FLUSH [None]
  - RASH PRURITIC [None]
  - ROSACEA [None]
